FAERS Safety Report 19410449 (Version 1)
Quarter: 2021Q2

REPORT INFORMATION
  Report Type: Spontaneous
  Country: US (occurrence: US)
  Receive Date: 20210612
  Receipt Date: 20210612
  Transmission Date: 20210717
  Serious: No
  Sender: FDA-Public Use
  Company Number: None

PATIENT
  Age: 21 Year
  Sex: Female

DRUGS (1)
  1. SULFAMETHOXAZOLE/TRIMETHOPRIM [Suspect]
     Active Substance: SULFAMETHOXAZOLE\TRIMETHOPRIM
     Indication: HORDEOLUM
     Route: 048
     Dates: start: 20210612, end: 20210612

REACTIONS (3)
  - Eye pain [None]
  - Ocular hyperaemia [None]
  - Uveitis [None]

NARRATIVE: CASE EVENT DATE: 20210612
